FAERS Safety Report 10854643 (Version 1)
Quarter: 2015Q1

REPORT INFORMATION
  Report Type: Spontaneous
  Country: US (occurrence: None)
  Receive Date: 20150218
  Receipt Date: 20150218
  Transmission Date: 20150721
  Serious: Yes (Congenital Anomaly)
  Sender: FDA-Public Use
  Company Number: None

PATIENT
  Age: 1 Day
  Sex: Male
  Weight: 4.08 kg

DRUGS (2)
  1. ZOFRAN [Suspect]
     Active Substance: ONDANSETRON HYDROCHLORIDE
     Indication: PREGNANCY
     Dosage: THREE TIMES DAILY, TAKEN BY MOUTH
     Route: 048
     Dates: start: 20110903
  2. ZOFRAN [Suspect]
     Active Substance: ONDANSETRON HYDROCHLORIDE
     Indication: DEHYDRATION
     Dosage: THREE TIMES DAILY, TAKEN BY MOUTH
     Route: 048
     Dates: start: 20110903

REACTIONS (1)
  - Heart disease congenital [None]
